FAERS Safety Report 4621827-7 (Version None)
Quarter: 2005Q1

REPORT INFORMATION
  Report Type: 
  Country: None (occurrence: None)
  Receive Date: 20050329
  Receipt Date: 20050215
  Transmission Date: 20050727
  Serious: Yes (Life-Threatening)
  Sender: FDA-Public Use
  Company Number: 200510518JP

PATIENT
  Age: 67 Year
  Sex: Female

DRUGS (4)
  1. KETEK [Suspect]
     Indication: BRONCHITIS
     Route: 048
     Dates: start: 20041116, end: 20041116
  2. THEO-DUR [Concomitant]
     Indication: BRONCHITIS
     Route: 048
     Dates: start: 20041115, end: 20041116
  3. BISOLVON [Concomitant]
     Indication: BRONCHITIS
     Route: 048
     Dates: start: 20041115, end: 20041116
  4. CLARITIN [Concomitant]
     Indication: BRONCHITIS
     Route: 048
     Dates: start: 20041115, end: 20041116

REACTIONS (9)
  - BLOOD PRESSURE DECREASED [None]
  - CARDIAC ARREST [None]
  - CEREBRAL INFARCTION [None]
  - COLD SWEAT [None]
  - FEELING COLD [None]
  - HEMIPLEGIA [None]
  - LOSS OF CONSCIOUSNESS [None]
  - RESPIRATORY ARREST [None]
  - VOMITING [None]
